FAERS Safety Report 17871204 (Version 2)
Quarter: 2020Q2

REPORT INFORMATION
  Report Type: Spontaneous
  Country: FR (occurrence: FR)
  Receive Date: 20200608
  Receipt Date: 20200610
  Transmission Date: 20200714
  Serious: Yes (Death)
  Sender: FDA-Public Use
  Company Number: FR-PFIZER INC-2020220770

PATIENT
  Age: 62 Year
  Sex: Male
  Weight: 54 kg

DRUGS (4)
  1. DOCETAXEL. [Suspect]
     Active Substance: DOCETAXEL
     Indication: SQUAMOUS CELL CARCINOMA
     Dosage: 92 MG THEN 78 MG
     Route: 041
     Dates: start: 20200302, end: 20200325
  2. FLUOROURACIL. [Suspect]
     Active Substance: FLUOROURACIL
     Indication: SQUAMOUS CELL CARCINOMA
     Dosage: 4550 MG THEN 3575 MG
     Route: 041
     Dates: start: 20200302, end: 20200325
  3. CISPLATIN. [Suspect]
     Active Substance: CISPLATIN
     Indication: SQUAMOUS CELL CARCINOMA
     Dosage: 91 MG THEN 89.5 MG
     Route: 041
     Dates: start: 20200302, end: 20200325
  4. METHYLPREDNISOLONE SODIUM SUCCINATE. [Suspect]
     Active Substance: METHYLPREDNISOLONE SODIUM SUCCINATE
     Indication: SQUAMOUS CELL CARCINOMA
     Dosage: 120 MG
     Route: 041
     Dates: start: 20200302, end: 20200325

REACTIONS (1)
  - COVID-19 pneumonia [Fatal]

NARRATIVE: CASE EVENT DATE: 20200330
